FAERS Safety Report 20480362 (Version 2)
Quarter: 2022Q1

REPORT INFORMATION
  Report Type: Spontaneous
  Country: US (occurrence: None)
  Receive Date: 20220216
  Receipt Date: 20220304
  Transmission Date: 20220424
  Serious: Yes (Life-Threatening, Hospitalization, Disabling, Other)
  Sender: FDA-Public Use
  Company Number: 2022A069717

PATIENT
  Age: 69 Year
  Sex: Female
  Weight: 81.6 kg

DRUGS (9)
  1. OLAPARIB [Suspect]
     Active Substance: OLAPARIB
     Indication: BRCA1 gene mutation
     Route: 048
     Dates: start: 20210816, end: 20220202
  2. OLAPARIB [Suspect]
     Active Substance: OLAPARIB
     Indication: Breast cancer metastatic
     Route: 048
     Dates: start: 20210816, end: 20220202
  3. OLAPARIB [Suspect]
     Active Substance: OLAPARIB
     Indication: Breast cancer metastatic
     Route: 048
     Dates: start: 20210816, end: 20220202
  4. LETROZOLE [Concomitant]
     Active Substance: LETROZOLE
     Dates: start: 202108
  5. LETROZOLE [Concomitant]
     Active Substance: LETROZOLE
     Dates: start: 202201
  6. ARIMIDEX [Concomitant]
     Active Substance: ANASTROZOLE
     Dates: start: 2004
  7. FEMARA [Concomitant]
     Active Substance: LETROZOLE
     Dates: start: 2019, end: 202106
  8. PALBOCICLIB [Concomitant]
     Active Substance: PALBOCICLIB
     Dates: start: 2019
  9. OXYGEN [Concomitant]
     Active Substance: OXYGEN
     Dates: start: 202201

REACTIONS (4)
  - Interstitial lung disease [Recovering/Resolving]
  - Thrombocytopenia [Recovering/Resolving]
  - Acute respiratory failure [Recovering/Resolving]
  - Dyspnoea [Recovering/Resolving]

NARRATIVE: CASE EVENT DATE: 20220202
